FAERS Safety Report 10656085 (Version 2)
Quarter: 2015Q1

REPORT INFORMATION
  Report Type: Spontaneous
  Country: US (occurrence: US)
  Receive Date: 20141216
  Receipt Date: 20150127
  Transmission Date: 20150720
  Serious: Yes (Hospitalization, Other)
  Sender: FDA-Public Use
  Company Number: US-BAYER-2014-184482

PATIENT
  Age: 25 Year
  Sex: Female
  Weight: 63 kg

DRUGS (3)
  1. MIRENA [Suspect]
     Active Substance: LEVONORGESTREL
     Indication: CONTRACEPTION
     Dosage: 20 MCG/24HR, CONT
     Route: 015
     Dates: start: 20100506, end: 20110415
  2. INSULIN [Concomitant]
     Active Substance: INSULIN NOS
     Indication: DIABETES MELLITUS
     Dosage: UNK
     Dates: start: 1989
  3. LEVOTHYROXIN [Concomitant]
     Active Substance: LEVOTHYROXINE
     Indication: THYROID DISORDER
     Dosage: 200 MCG QD
     Dates: start: 2006

REACTIONS (13)
  - Pelvic pain [None]
  - Fear [None]
  - Abdominal pain [None]
  - Depressed mood [None]
  - Internal injury [None]
  - Emotional distress [None]
  - Device issue [None]
  - Genital haemorrhage [None]
  - Injury [None]
  - Uterine perforation [None]
  - Depression [None]
  - Medical device discomfort [None]
  - Anxiety [None]

NARRATIVE: CASE EVENT DATE: 201103
